FAERS Safety Report 8479074-7 (Version None)
Quarter: 2012Q2

REPORT INFORMATION
  Report Type: 
  Country: None (occurrence: None)
  Receive Date: 20120629
  Receipt Date: 20120621
  Transmission Date: 20120825
  Serious: Yes (Other)
  Sender: FDA-Public Use
  Company Number: CA-JNJFOC-20120513540

PATIENT
  Sex: Female
  Weight: 68 kg

DRUGS (5)
  1. ACETAMINOPHEN [Concomitant]
     Route: 048
  2. REMICADE [Suspect]
     Indication: COLITIS ULCERATIVE
     Dosage: ONCE IN 6 TO 8 WEEKS
     Route: 042
     Dates: start: 20030101
  3. REMICADE [Suspect]
     Indication: RHEUMATOID ARTHRITIS
     Route: 042
     Dates: start: 20120511
  4. REMICADE [Suspect]
     Route: 042
     Dates: start: 20120511
  5. REMICADE [Suspect]
     Dosage: ONCE IN 6 TO 8 WEEKS
     Route: 042
     Dates: start: 20030101

REACTIONS (6)
  - HYPERHIDROSIS [None]
  - PYREXIA [None]
  - MYALGIA [None]
  - ARTHRALGIA [None]
  - SINUSITIS [None]
  - FATIGUE [None]
